FAERS Safety Report 19755201 (Version 2)
Quarter: 2022Q3

REPORT INFORMATION
  Report Type: Spontaneous
  Country: US (occurrence: US)
  Receive Date: 20210827
  Receipt Date: 20220809
  Transmission Date: 20221027
  Serious: Yes (Other)
  Sender: FDA-Public Use
  Company Number: US-SA-SAC20210825000009

PATIENT
  Age: 47 Year
  Sex: Female

DRUGS (1)
  1. ZANTAC [Suspect]
     Active Substance: RANITIDINE HYDROCHLORIDE
     Indication: Gastrooesophageal reflux disease
     Dosage: 150 MG, FREQUENCY: OTHER
     Route: 048
     Dates: start: 19870101, end: 20200101

REACTIONS (5)
  - Throat cancer [Recovered/Resolved]
  - Disability [Unknown]
  - Pain [Unknown]
  - Anhedonia [Unknown]
  - Anxiety [Unknown]

NARRATIVE: CASE EVENT DATE: 20170101
